FAERS Safety Report 12524720 (Version 1)
Quarter: 2016Q3

REPORT INFORMATION
  Report Type: Report from Study
  Country: US (occurrence: US)
  Receive Date: 20160704
  Receipt Date: 20160704
  Transmission Date: 20161109
  Serious: Yes (Hospitalization, Other)
  Sender: FDA-Public Use
  Company Number: US-BIOGEN-2016BI00259062

PATIENT
  Sex: Female

DRUGS (1)
  1. TECFIDERA [Suspect]
     Active Substance: DIMETHYL FUMARATE
     Indication: MULTIPLE SCLEROSIS
     Dosage: MAINTENANCE DOSE
     Route: 048
     Dates: start: 20160520

REACTIONS (7)
  - Seizure [Unknown]
  - Weight increased [Unknown]
  - Headache [Unknown]
  - Fear [Unknown]
  - Derealisation [Unknown]
  - Optic neuritis [Unknown]
  - Drug administered to patient of inappropriate age [Not Recovered/Not Resolved]
